FAERS Safety Report 5501826-3 (Version None)
Quarter: 2007Q4

REPORT INFORMATION
  Report Type: 
  Country: None (occurrence: None)
  Receive Date: 20071030
  Receipt Date: 20061108
  Transmission Date: 20080405
  Serious: No
  Sender: FDA-Public Use
  Company Number: A0622120A

PATIENT
  Age: 67 Year
  Sex: Female

DRUGS (5)
  1. SEREVENT [Suspect]
     Indication: ASTHMA
     Dosage: 1PUFF TWICE PER DAY
     Route: 055
     Dates: start: 20060909
  2. ESTRADERM [Suspect]
  3. RANITIDINE [Concomitant]
  4. MOBIC [Concomitant]
  5. ANTIDEPRESSANT [Concomitant]

REACTIONS (3)
  - ANGER [None]
  - DYSPNOEA [None]
  - PHARMACEUTICAL PRODUCT COMPLAINT [None]
